FAERS Safety Report 12809300 (Version 1)
Quarter: 2016Q4

REPORT INFORMATION
  Report Type: Spontaneous
  Country: US (occurrence: US)
  Receive Date: 20161004
  Receipt Date: 20161004
  Transmission Date: 20170207
  Serious: No
  Sender: FDA-Public Use
  Company Number: US-AMGEN-USASP2016132332

PATIENT
  Age: 64 Year
  Sex: Female
  Weight: 82.99 kg

DRUGS (1)
  1. ENBREL [Suspect]
     Active Substance: ETANERCEPT
     Indication: RHEUMATOID ARTHRITIS
     Dosage: 50 MG, QWK
     Route: 058

REACTIONS (4)
  - Rash [Unknown]
  - Scab [Not Recovered/Not Resolved]
  - Injection site mass [Unknown]
  - Rash pruritic [Unknown]
